FAERS Safety Report 16282366 (Version 2)
Quarter: 2019Q3

REPORT INFORMATION
  Report Type: Spontaneous
  Country: DE (occurrence: DE)
  Receive Date: 20190507
  Receipt Date: 20190906
  Transmission Date: 20191004
  Serious: Yes (Hospitalization, Other)
  Sender: FDA-Public Use
  Company Number: DE-SA-2019SA119199

PATIENT
  Age: 47 Year
  Sex: Female
  Weight: 68 kg

DRUGS (4)
  1. CERDELGA [Suspect]
     Active Substance: ELIGLUSTAT
     Indication: GAUCHER^S DISEASE
     Dosage: 2 DF, QD
     Route: 048
     Dates: start: 20180920, end: 20190418
  2. OMEPRAZOLE. [Concomitant]
     Active Substance: OMEPRAZOLE
  3. CERDELGA [Suspect]
     Active Substance: ELIGLUSTAT
     Dosage: 2 DF, QD
     Route: 048
     Dates: start: 20190424
  4. NAPROXEN [NAPROXEN SODIUM] [Concomitant]
     Indication: PAIN
     Dosage: 1-2, PRN
     Route: 048
     Dates: start: 201602

REACTIONS (2)
  - Syncope [Recovered/Resolved]
  - Presyncope [Unknown]

NARRATIVE: CASE EVENT DATE: 20190322
